FAERS Safety Report 9821884 (Version 1)
Quarter: 2014Q1

REPORT INFORMATION
  Report Type: Spontaneous
  Country: US (occurrence: None)
  Receive Date: 20140114
  Receipt Date: 20140114
  Transmission Date: 20141002
  Serious: Yes (Other)
  Sender: FDA-Public Use
  Company Number: AEGR000141

PATIENT
  Age: 68 Year
  Sex: Male

DRUGS (1)
  1. JUXTAPID [Suspect]
     Indication: TYPE IIA HYPERLIPIDAEMIA
     Route: 048
     Dates: start: 201308, end: 20130906

REACTIONS (3)
  - Hepatic enzyme increased [None]
  - Diarrhoea [None]
  - Joint stiffness [None]
